FAERS Safety Report 8435078-1 (Version None)
Quarter: 2012Q2

REPORT INFORMATION
  Report Type: 
  Country: None (occurrence: None)
  Receive Date: 20120614
  Receipt Date: 20120607
  Transmission Date: 20120825
  Serious: Yes (Other)
  Sender: FDA-Public Use
  Company Number: PHHY2012IT049513

PATIENT
  Age: 68 Year
  Sex: Male
  Weight: 62 kg

DRUGS (6)
  1. MYCOPHENOLATE MOFETIL [Suspect]
     Dosage: 500 MG, EVERY 12 HOURS
  2. CYCLOSPORINE [Suspect]
     Indication: LIVER AND PANCREAS TRANSPLANT REJECTION
     Dosage: 75 MG, EVERY 12 HOURS
  3. CYCLOSPORINE [Suspect]
     Dosage: 50 MG, EVERY 12 HOURS
  4. CYCLOSPORINE [Suspect]
     Dosage: 50 MG, EVERY 12 HOURS
  5. CYCLOSPORINE [Suspect]
     Dosage: 75 MG, EVERY 12 HOURS FOR 3 DAYS
  6. CAPECITABINE [Concomitant]
     Dosage: 500 MG, UNK

REACTIONS (18)
  - BLOOD CHLORIDE DECREASED [None]
  - WEIGHT DECREASED [None]
  - DEPRESSION [None]
  - AZOTAEMIA [None]
  - ASTHENIA [None]
  - VOMITING [None]
  - ANAEMIA [None]
  - MEDICATION ERROR [None]
  - RENAL FAILURE ACUTE [None]
  - ABDOMINAL DISCOMFORT [None]
  - IMMUNOSUPPRESSANT DRUG LEVEL DECREASED [None]
  - RENAL FAILURE CHRONIC [None]
  - BLOOD CREATININE INCREASED [None]
  - DIARRHOEA [None]
  - HYPERBILIRUBINAEMIA [None]
  - PYREXIA [None]
  - BLOOD SODIUM DECREASED [None]
  - HYPERKALAEMIA [None]
